FAERS Safety Report 10422059 (Version 1)
Quarter: 2014Q3

REPORT INFORMATION
  Report Type: Spontaneous
  Country: US (occurrence: US)
  Receive Date: 20140901
  Receipt Date: 20140901
  Transmission Date: 20150326
  Serious: No
  Sender: FDA-Public Use
  Company Number: US-SA-2013SA107409

PATIENT
  Age: 73 Year
  Sex: Female

DRUGS (1)
  1. AVAPRO [Suspect]
     Active Substance: IRBESARTAN
     Indication: BLOOD PRESSURE
     Dosage: FRQUENCY:-1/2 TABLET TWICE A DAY
     Route: 048

REACTIONS (3)
  - Wrong technique in drug usage process [Unknown]
  - Pharyngeal disorder [Not Recovered/Not Resolved]
  - Oesophageal spasm [Not Recovered/Not Resolved]
